FAERS Safety Report 22026020 (Version 2)
Quarter: 2023Q1

REPORT INFORMATION
  Report Type: Spontaneous
  Country: US (occurrence: US)
  Receive Date: 20230223
  Receipt Date: 20230307
  Transmission Date: 20230417
  Serious: Yes (Hospitalization)
  Sender: FDA-Public Use
  Company Number: US-SA-SAC20230222000209

PATIENT
  Age: 43 Year
  Sex: Male
  Weight: 80.25 kg

DRUGS (29)
  1. FABRAZYME [Suspect]
     Active Substance: AGALSIDASE BETA
     Indication: Mucopolysaccharidosis
     Dosage: 80 MG, QOW
     Route: 042
     Dates: start: 20110926
  2. LORATADINE D [Concomitant]
     Active Substance: LORATADINE\PSEUDOEPHEDRINE SULFATE
  3. BENADRYL [Concomitant]
     Active Substance: DIPHENHYDRAMINE HYDROCHLORIDE
  4. MYCOPHENOLIC ACID [Concomitant]
     Active Substance: MYCOPHENOLIC ACID
  5. CREON [Concomitant]
     Active Substance: PANCRELIPASE AMYLASE\PANCRELIPASE LIPASE\PANCRELIPASE PROTEASE
  6. LIDOCAINE [Concomitant]
     Active Substance: LIDOCAINE
  7. VITAMIN D3 [Concomitant]
     Active Substance: CHOLECALCIFEROL
  8. DIPHENHYDRAMINE [Concomitant]
     Active Substance: DIPHENHYDRAMINE
  9. HEPARIN [Concomitant]
     Active Substance: HEPARIN SODIUM
  10. MESALAMINE [Concomitant]
     Active Substance: MESALAMINE
  11. EPINEPHRINE [Concomitant]
     Active Substance: EPINEPHRINE
  12. CRESTOR [Concomitant]
     Active Substance: ROSUVASTATIN CALCIUM
  13. PROLIA [Concomitant]
     Active Substance: DENOSUMAB
  14. IMITREX [Concomitant]
     Active Substance: SUMATRIPTAN SUCCINATE
  15. PREDNISONE [Concomitant]
     Active Substance: PREDNISONE
  16. PROGRAF [Concomitant]
     Active Substance: TACROLIMUS
  17. STERILE WATER [Concomitant]
     Active Substance: WATER
  18. TYLENOL EXTRA STRENGTH [Concomitant]
     Active Substance: ACETAMINOPHEN
  19. AMOXICILLIN [Concomitant]
     Active Substance: AMOXICILLIN
  20. SODIUM CHLORIDE [Concomitant]
     Active Substance: SODIUM CHLORIDE
  21. FAMOTIDINE [Concomitant]
     Active Substance: FAMOTIDINE
  22. GABAPENTIN [Concomitant]
     Active Substance: GABAPENTIN
  23. METOPROLOL TARTRATE [Concomitant]
     Active Substance: METOPROLOL TARTRATE
  24. AZELASTINE [Concomitant]
     Active Substance: AZELASTINE
  25. FLUTICASONE [Concomitant]
     Active Substance: FLUTICASONE
  26. SODIUM CHLORIDE [Concomitant]
     Active Substance: SODIUM CHLORIDE
  27. MODERNA COVID-19 VACCINE [Concomitant]
     Active Substance: ELASOMERAN
  28. SENNA TIME S [Concomitant]
     Active Substance: DOCUSATE SODIUM\SENNOSIDES A AND B
  29. ASPIRIN [Concomitant]
     Active Substance: ASPIRIN
     Dosage: UNK

REACTIONS (3)
  - Spinal laminectomy [Unknown]
  - Pain [Unknown]
  - Product use in unapproved indication [Unknown]

NARRATIVE: CASE EVENT DATE: 20110926
